FAERS Safety Report 19687845 (Version 2)
Quarter: 2022Q2

REPORT INFORMATION
  Report Type: Spontaneous
  Country: US (occurrence: US)
  Receive Date: 20210811
  Receipt Date: 20220411
  Transmission Date: 20220720
  Serious: No
  Sender: FDA-Public Use
  Company Number: US-PFIZER INC-2021582613

PATIENT
  Age: 74 Year
  Sex: Female

DRUGS (1)
  1. IBRANCE [Suspect]
     Active Substance: PALBOCICLIB
     Indication: Breast cancer metastatic
     Dosage: 125 MG
     Dates: start: 202104

REACTIONS (8)
  - Bone pain [Unknown]
  - Lethargy [Recovered/Resolved]
  - Feeling abnormal [Unknown]
  - Ageusia [Unknown]
  - Dysphagia [Unknown]
  - Alopecia [Unknown]
  - Amnesia [Unknown]
  - Skin wrinkling [Unknown]
